FAERS Safety Report 12254782 (Version 2)
Quarter: 2016Q2

REPORT INFORMATION
  Report Type: Spontaneous
  Country: US (occurrence: US)
  Receive Date: 20160411
  Receipt Date: 20160413
  Transmission Date: 20160815
  Serious: No
  Sender: FDA-Public Use
  Company Number: US-009507513-1604USA005859

PATIENT
  Age: 17 Year
  Sex: Female

DRUGS (1)
  1. NEXPLANON [Suspect]
     Active Substance: ETONOGESTREL
     Indication: CONTRACEPTION
     Dosage: UNK
     Route: 059
     Dates: start: 20140321

REACTIONS (2)
  - Implant site hypoaesthesia [Not Recovered/Not Resolved]
  - Menstruation irregular [Not Recovered/Not Resolved]

NARRATIVE: CASE EVENT DATE: 201603
